FAERS Safety Report 11419868 (Version 1)
Quarter: 2015Q3

REPORT INFORMATION
  Report Type: Spontaneous
  Country: US (occurrence: None)
  Receive Date: 20150820
  Receipt Date: 20150820
  Transmission Date: 20151125
  Serious: No
  Sender: FDA-Public Use
  Company Number: PHEH2015US008835

PATIENT
  Age: 76 Year
  Sex: Male

DRUGS (11)
  1. VITAMIN D (ERGOCALCIFEROL) [Concomitant]
     Active Substance: ERGOCALCIFEROL
  2. GLUCOSAMINE CHONDROITIN (CHONDROITIN SULFATE, GLUCOSAMINE SULFATE) [Concomitant]
  3. SPIRONOLACTONE (SPIRONOLACTONE) [Concomitant]
     Active Substance: SPIRONOLACTONE
  4. VERAPAMIL [Concomitant]
     Active Substance: VERAPAMIL HYDROCHLORIDE
  5. LISINOPRIL (LISINOPRIL) [Concomitant]
     Active Substance: LISINOPRIL
  6. HCTZ (HYDROCHLOROTHIAZIDE) [Concomitant]
     Active Substance: HYDROCHLOROTHIAZIDE
  7. COSENTYX [Suspect]
     Active Substance: SECUKINUMAB
     Indication: PSORIASIS
     Route: 030
  8. MULTI VITAMIN (ASCORBIC ACID, COLECALCIFEROL, NICOTINAMIDE, PANTHENOL, PYRIDOXINE HYDROCHLORIDE, RETINOL PALMITATE, RIBOFLAVIN, THIAMINE HYDROCHLORIDE, TOCOPHERYL ACETATE) [Concomitant]
  9. VITAMIN E [Concomitant]
     Active Substance: .ALPHA.-TOCOPHEROL
  10. MAGNESIUM (MAGNESIUM) [Concomitant]
     Active Substance: MAGNESIUM
  11. IRON SULFATE (FERROUS SULFATE) [Concomitant]

REACTIONS (4)
  - Incorrect route of drug administration [None]
  - Incorrect dose administered [None]
  - Injury [None]
  - Injection site haemorrhage [None]
